FAERS Safety Report 4761320-4 (Version None)
Quarter: 2005Q3

REPORT INFORMATION
  Report Type: 
  Country: None (occurrence: None)
  Receive Date: 20050901
  Receipt Date: 20050901
  Transmission Date: 20060218
  Serious: Yes (Hospitalization)
  Sender: FDA-Public Use
  Company Number: None

PATIENT
  Age: 76 Year
  Sex: Male
  Weight: 75 kg

DRUGS (1)
  1. CETUXIMAB  -ERBITUX- [Suspect]
     Indication: COLON CANCER
     Dosage: 760 MG     IV
     Route: 042
     Dates: start: 20050824, end: 20050824

REACTIONS (1)
  - ANAPHYLACTIC REACTION [None]
